FAERS Safety Report 22157500 (Version 3)
Quarter: 2023Q2

REPORT INFORMATION
  Report Type: Report from Study
  Country: BR (occurrence: None)
  Receive Date: 20230330
  Receipt Date: 20230424
  Transmission Date: 20230721
  Serious: Yes (Hospitalization)
  Sender: FDA-Public Use
  Company Number: BR-ROCHE-3259356

PATIENT
  Age: 60 Year
  Sex: Female
  Weight: 85 kg

DRUGS (25)
  1. MOSUNETUZUMAB [Suspect]
     Active Substance: MOSUNETUZUMAB
     Indication: Non-Hodgkin^s lymphoma metastatic
     Dosage: ON 04/NOV/2022 11:12 AM TO 2:29 PM, SHE RECEIVED MOST RECENT DOSE OF MOSUNETUZUMAB AT 30 MG PRIOR AE
     Route: 042
     Dates: start: 20220520
  2. LENALIDOMIDE [Suspect]
     Active Substance: LENALIDOMIDE
     Indication: Non-Hodgkin^s lymphoma metastatic
     Dosage: ON 06/OCT/2022, SHE RECEIVED MOST RECENT DOSE OF LENALIDOMIDE AT 20 MG PRIOR AE /SAE ONSET.
     Route: 048
     Dates: start: 20220610
  3. ATENOLOL [Concomitant]
     Active Substance: ATENOLOL
     Indication: Hypertension
     Route: 048
     Dates: start: 2012
  4. PAROXETINE [Concomitant]
     Active Substance: PAROXETINE
     Indication: Depression
     Route: 048
     Dates: start: 2019
  5. BISACODYL [Concomitant]
     Active Substance: BISACODYL
     Indication: Constipation
     Route: 048
     Dates: start: 20220624
  6. HYDROXYZINE [Concomitant]
     Active Substance: HYDROXYZINE HYDROCHLORIDE
     Indication: Rash
     Route: 048
     Dates: start: 20220707
  7. DEXCHLORPHENIRAMINE [Concomitant]
     Active Substance: DEXCHLORPHENIRAMINE
     Indication: Rash
     Dosage: 10 OTHER
     Route: 061
     Dates: start: 20220702
  8. ENOXAPARIN [Concomitant]
     Active Substance: ENOXAPARIN
     Route: 057
     Dates: start: 20220901
  9. FENOTEROL HYDROBROMIDE\IPRATROPIUM BROMIDE [Concomitant]
     Active Substance: FENOTEROL HYDROBROMIDE\IPRATROPIUM BROMIDE
     Indication: Pneumonitis
     Dosage: 8 INHALATION
     Route: 055
     Dates: start: 20220904
  10. BUDESONIDE\FORMOTEROL FUMARATE DIHYDRATE [Concomitant]
     Active Substance: BUDESONIDE\FORMOTEROL FUMARATE DIHYDRATE
     Indication: Pneumonitis
     Dosage: 2 INHALATION
     Route: 055
     Dates: start: 20220904
  11. AZITHROMYCIN [Concomitant]
     Active Substance: AZITHROMYCIN
     Indication: Febrile neutropenia
     Route: 042
     Dates: start: 20220905
  12. PREDNISONE [Concomitant]
     Active Substance: PREDNISONE
     Indication: Lung infiltration
     Route: 048
     Dates: start: 20220923
  13. ACETAMINOPHEN [Concomitant]
     Active Substance: ACETAMINOPHEN
     Route: 048
     Dates: start: 20220519
  14. DIPHENHYDRAMINE [Concomitant]
     Active Substance: DIPHENHYDRAMINE
     Indication: Prophylaxis
     Route: 048
     Dates: start: 20220519
  15. DEXAMETHASONE [Concomitant]
     Active Substance: DEXAMETHASONE
     Indication: Prophylaxis
     Route: 048
     Dates: start: 20220519
  16. TYLENOL [Concomitant]
     Active Substance: ACETAMINOPHEN
     Route: 048
     Dates: start: 20230106, end: 20230109
  17. UNASYN [Concomitant]
     Active Substance: AMPICILLIN SODIUM\SULBACTAM SODIUM
     Indication: Pneumonia
     Route: 042
     Dates: start: 20230106, end: 20230110
  18. ALLEGRA [Concomitant]
     Active Substance: FEXOFENADINE HYDROCHLORIDE
     Indication: Sinusitis
     Route: 048
     Dates: start: 20230107, end: 20230107
  19. DECADRON [Concomitant]
     Active Substance: DEXAMETHASONE
     Indication: Pneumonia
     Route: 042
     Dates: start: 20230106, end: 20230110
  20. CODEINE [Concomitant]
     Active Substance: CODEINE
     Route: 048
     Dates: start: 20230108, end: 20230111
  21. LACTULOSE [Concomitant]
     Active Substance: LACTULOSE
     Indication: Constipation
     Route: 048
     Dates: start: 20220624
  22. LOSEC [Concomitant]
     Active Substance: OMEPRAZOLE
     Indication: Abdominal pain upper
     Route: 048
     Dates: start: 20230109, end: 20230109
  23. MYLANTA PLUS [Concomitant]
     Active Substance: ALUMINUM HYDROXIDE\DIMETHICONE\MAGNESIUM HYDROXIDE
     Indication: Abdominal pain upper
     Route: 048
     Dates: start: 20230109, end: 20230109
  24. PANTOZOL [Concomitant]
     Active Substance: PANTOPRAZOLE SODIUM
     Indication: Abdominal pain upper
     Route: 048
     Dates: start: 20230110, end: 20230110
  25. AMOXICILLIN\CLAVULANATE POTASSIUM [Concomitant]
     Active Substance: AMOXICILLIN\CLAVULANATE POTASSIUM
     Indication: Pneumonia
     Route: 048
     Dates: start: 20230110

REACTIONS (1)
  - COVID-19 pneumonia [Recovered/Resolved]

NARRATIVE: CASE EVENT DATE: 20221227
